FAERS Safety Report 19452723 (Version 1)
Quarter: 2021Q2

REPORT INFORMATION
  Report Type: Spontaneous
  Country: ZA (occurrence: ZA)
  Receive Date: 20210623
  Receipt Date: 20210623
  Transmission Date: 20210717
  Serious: Yes (Hospitalization)
  Sender: FDA-Public Use
  Company Number: ZA-AMGEN-ZAFSP2021095119

PATIENT
  Sex: Male

DRUGS (8)
  1. CELEBREX [Concomitant]
     Active Substance: CELECOXIB
     Dosage: 200 MG MANE
  2. ENBREL [Suspect]
     Active Substance: ETANERCEPT
     Indication: PRODUCT USED FOR UNKNOWN INDICATION
     Dosage: 50 MG, WEEKLY
     Route: 065
  3. MIRADEP [Concomitant]
     Active Substance: MIRTAZAPINE
     Dosage: 30 MG NOCTE
  4. METHOTREXATE. [Concomitant]
     Active Substance: METHOTREXATE
     Dosage: 7.5 MG FRIDAYS
  5. RIVOTRIL [Concomitant]
     Active Substance: CLONAZEPAM
     Dosage: 0.5 MG, 3X/DAY X 1.52 THEN 0.5MG BD X 1/52 THEN PRN ONLY
  6. NURIKA [Concomitant]
     Dosage: 150 MG NOCTE
  7. NURIKA [Concomitant]
     Dosage: 75 MG MANE
  8. ODIVEN [Concomitant]
     Dosage: 75 MG, 2X/DAY
     Route: 048

REACTIONS (2)
  - Suicidal ideation [Unknown]
  - Depression [Unknown]
